FAERS Safety Report 6144700-4 (Version None)
Quarter: 2009Q2

REPORT INFORMATION
  Report Type: 
  Country: None (occurrence: None)
  Receive Date: 20090406
  Receipt Date: 20090330
  Transmission Date: 20091009
  Serious: Yes (Other)
  Sender: FDA-Public Use
  Company Number: B0567812A

PATIENT
  Sex: Male

DRUGS (1)
  1. AROPAX [Suspect]
     Indication: UNEMPLOYMENT
     Dosage: 20MG PER DAY
     Route: 065

REACTIONS (19)
  - ASTHENIA [None]
  - BLOOD POTASSIUM INCREASED [None]
  - CHEST PAIN [None]
  - DEHYDRATION [None]
  - DISTURBANCE IN ATTENTION [None]
  - DIZZINESS [None]
  - DRY MOUTH [None]
  - FATIGUE [None]
  - HEADACHE [None]
  - HEPATIC FUNCTION ABNORMAL [None]
  - INSOMNIA [None]
  - MOOD ALTERED [None]
  - NAUSEA [None]
  - PARTNER STRESS [None]
  - RASH [None]
  - RASH PRURITIC [None]
  - RECTAL HAEMORRHAGE [None]
  - TREMOR [None]
  - WEIGHT INCREASED [None]
